FAERS Safety Report 13491985 (Version 2)
Quarter: 2017Q2

REPORT INFORMATION
  Report Type: Report from Study
  Country: US (occurrence: US)
  Receive Date: 20170427
  Receipt Date: 20170623
  Transmission Date: 20170830
  Serious: Yes (Other)
  Sender: FDA-Public Use
  Company Number: US-TEVA-761703USA

PATIENT
  Age: 67 Year
  Sex: Male
  Weight: 103.51 kg

DRUGS (8)
  1. FLECAINIDE [Interacting]
     Active Substance: FLECAINIDE
     Indication: ARRHYTHMIA
  2. CARTIA XT [Interacting]
     Active Substance: DILTIAZEM HYDROCHLORIDE
     Indication: CARDIAC DISORDER
     Route: 065
  3. CINQAIR [Suspect]
     Active Substance: RESLIZUMAB
     Indication: ASTHMA
     Route: 065
     Dates: start: 201702
  4. LOSARTAN. [Interacting]
     Active Substance: LOSARTAN
     Indication: CARDIAC DISORDER
     Route: 065
  5. AMLODIPINE [Interacting]
     Active Substance: AMLODIPINE BESYLATE
     Indication: CARDIAC DISORDER
     Route: 065
  6. BREO ELLIPTA [Interacting]
     Active Substance: FLUTICASONE FUROATE\VILANTEROL TRIFENATATE
     Indication: ASTHMA
  7. INCRUSE ELLIPTA [Interacting]
     Active Substance: UMECLIDINIUM BROMIDE
     Indication: CHRONIC OBSTRUCTIVE PULMONARY DISEASE
  8. TAMSULOSIN [Interacting]
     Active Substance: TAMSULOSIN
     Indication: PROSTATIC DISORDER
     Route: 065

REACTIONS (5)
  - Nausea [Recovering/Resolving]
  - Weight decreased [Unknown]
  - Arthralgia [Recovering/Resolving]
  - Drug interaction [Unknown]
  - Asthma [Unknown]

NARRATIVE: CASE EVENT DATE: 201702
